FAERS Safety Report 19103004 (Version 1)
Quarter: 2021Q2

REPORT INFORMATION
  Report Type: Spontaneous
  Country: US (occurrence: US)
  Receive Date: 20210407
  Receipt Date: 20210407
  Transmission Date: 20210717
  Serious: No
  Sender: FDA-Public Use
  Company Number: None

PATIENT
  Age: 34 Month
  Sex: Male

DRUGS (4)
  1. VIGABATRIN 500 MG PWD [Suspect]
     Active Substance: VIGABATRIN
     Indication: EPILEPSY
     Dosage: ?          OTHER FREQUENCY:A.M AND P.M.;?
     Route: 048
     Dates: start: 20190621
  2. NEXIUM [Concomitant]
     Active Substance: ESOMEPRAZOLE MAGNESIUM
  3. SABRIL [Concomitant]
     Active Substance: VIGABATRIN
  4. CUVPOSA [Concomitant]
     Active Substance: GLYCOPYRROLATE

REACTIONS (1)
  - Seizure [None]

NARRATIVE: CASE EVENT DATE: 20210322
